FAERS Safety Report 4695488-5 (Version None)
Quarter: 2005Q2

REPORT INFORMATION
  Report Type: 
  Country: None (occurrence: None)
  Receive Date: 20050620
  Receipt Date: 20050620
  Transmission Date: 20051028
  Serious: No
  Sender: FDA-Public Use
  Company Number: None

PATIENT
  Sex: Female
  Weight: 61.6892 kg

DRUGS (1)
  1. ACCUTANE [Suspect]
     Indication: ACNE
     Dosage: 1 PILL    TWICE A DAY   ORAL
     Route: 048
     Dates: start: 20040524, end: 20050130

REACTIONS (6)
  - ABDOMINAL DISTENSION [None]
  - ALOPECIA [None]
  - MENSTRUATION IRREGULAR [None]
  - POLYCYSTIC OVARIES [None]
  - SKIN DISORDER [None]
  - WEIGHT INCREASED [None]
